FAERS Safety Report 23887053 (Version 1)
Quarter: 2024Q2

REPORT INFORMATION
  Report Type: Spontaneous
  Country: CN (occurrence: CN)
  Receive Date: 20240523
  Receipt Date: 20240523
  Transmission Date: 20240716
  Serious: Yes (Other)
  Sender: FDA-Public Use
  Company Number: CN-TEYRO-2024-TY-000160

PATIENT
  Age: 67 Year
  Sex: Male
  Weight: 57 kg

DRUGS (6)
  1. GEMCITABINE [Suspect]
     Active Substance: GEMCITABINE
     Indication: Bile duct cancer stage II
     Dosage: UNK, TWO CYCLES
     Route: 065
  2. GEMCITABINE [Suspect]
     Active Substance: GEMCITABINE
     Dosage: UNK, TWO CYCLES
     Route: 065
     Dates: start: 20210721
  3. CAPECITABINE [Suspect]
     Active Substance: CAPECITABINE
     Indication: Bile duct cancer stage IV
     Dosage: UNK, ONE CYCLE
     Route: 065
  4. CISPLATIN [Suspect]
     Active Substance: CISPLATIN
     Indication: Bile duct cancer stage II
     Dosage: UNK, TWO CYCLES
     Route: 065
  5. CISPLATIN [Suspect]
     Active Substance: CISPLATIN
     Dosage: UNK, TWO CYCLES
     Route: 065
     Dates: start: 20210721
  6. OXALIPLATIN [Suspect]
     Active Substance: OXALIPLATIN
     Indication: Bile duct cancer stage IV
     Dosage: UNK, ONE CYCLE
     Route: 065

REACTIONS (8)
  - Metastases to liver [Unknown]
  - Metastases to peritoneum [Unknown]
  - Mesenteric neoplasm [Unknown]
  - Escherichia sepsis [Unknown]
  - Therapy non-responder [Unknown]
  - Neoplasm progression [Unknown]
  - Neutropenia [Unknown]
  - Off label use [Unknown]
